FAERS Safety Report 6153036-7 (Version None)
Quarter: 2009Q2

REPORT INFORMATION
  Report Type: 
  Country: None (occurrence: None)
  Receive Date: 20090413
  Receipt Date: 20090403
  Transmission Date: 20091009
  Serious: Yes (Hospitalization, Other)
  Sender: FDA-Public Use
  Company Number: FR-ABBOTT-09P-056-0564112-00

PATIENT
  Sex: Male

DRUGS (3)
  1. ZECLAR [Suspect]
     Indication: BRONCHITIS
     Route: 048
     Dates: start: 20090115, end: 20090123
  2. PREVISCAN [Interacting]
     Indication: ATRIAL FIBRILLATION
     Route: 048
  3. ANTIVITAMIN K [Concomitant]
     Indication: DRUG USE FOR UNKNOWN INDICATION

REACTIONS (4)
  - ANAEMIA [None]
  - DRUG INTERACTION [None]
  - EPISTAXIS [None]
  - MELAENA [None]
